FAERS Safety Report 5387074-9 (Version None)
Quarter: 2007Q3

REPORT INFORMATION
  Report Type: 
  Country: None (occurrence: None)
  Receive Date: 20070710
  Receipt Date: 20070629
  Transmission Date: 20080115
  Serious: Yes (Other)
  Sender: FDA-Public Use
  Company Number: CHPA2007US01029

PATIENT
  Age: 86 Year
  Sex: Female

DRUGS (1)
  1. EXCEDRIN (MIGRAINE) [Suspect]
     Indication: HEADACHE
     Dosage: ORAL
     Route: 048

REACTIONS (2)
  - COLON CANCER STAGE 0 [None]
  - INTESTINAL POLYP [None]
